FAERS Safety Report 25067982 (Version 1)
Quarter: 2025Q1

REPORT INFORMATION
  Report Type: Report from Study
  Country: IT (occurrence: IT)
  Receive Date: 20250312
  Receipt Date: 20250312
  Transmission Date: 20250408
  Serious: Yes (Other)
  Sender: MYLAN
  Company Number: None

PATIENT
  Age: 84 Year
  Sex: Male

DRUGS (24)
  1. DOXAZOSIN [Suspect]
     Active Substance: DOXAZOSIN MESYLATE
     Indication: Product used for unknown indication
  2. DOXAZOSIN [Suspect]
     Active Substance: DOXAZOSIN MESYLATE
     Route: 065
  3. DOXAZOSIN [Suspect]
     Active Substance: DOXAZOSIN MESYLATE
     Route: 065
  4. DOXAZOSIN [Suspect]
     Active Substance: DOXAZOSIN MESYLATE
  5. BISOPROLOL [Suspect]
     Active Substance: BISOPROLOL
     Indication: Product used for unknown indication
  6. BISOPROLOL [Suspect]
     Active Substance: BISOPROLOL
     Route: 065
  7. BISOPROLOL [Suspect]
     Active Substance: BISOPROLOL
     Route: 065
  8. BISOPROLOL [Suspect]
     Active Substance: BISOPROLOL
  9. RAMIPRIL [Suspect]
     Active Substance: RAMIPRIL
     Indication: Product used for unknown indication
  10. RAMIPRIL [Suspect]
     Active Substance: RAMIPRIL
     Route: 065
  11. RAMIPRIL [Suspect]
     Active Substance: RAMIPRIL
     Route: 065
  12. RAMIPRIL [Suspect]
     Active Substance: RAMIPRIL
  13. PANTOPRAZOLE SODIUM [Concomitant]
     Active Substance: PANTOPRAZOLE SODIUM
  14. PANTOPRAZOLE SODIUM [Concomitant]
     Active Substance: PANTOPRAZOLE SODIUM
     Route: 065
  15. PANTOPRAZOLE SODIUM [Concomitant]
     Active Substance: PANTOPRAZOLE SODIUM
     Route: 065
  16. PANTOPRAZOLE SODIUM [Concomitant]
     Active Substance: PANTOPRAZOLE SODIUM
  17. CANRENONE [Concomitant]
     Active Substance: CANRENONE
  18. CANRENONE [Concomitant]
     Active Substance: CANRENONE
     Route: 065
  19. CANRENONE [Concomitant]
     Active Substance: CANRENONE
     Route: 065
  20. CANRENONE [Concomitant]
     Active Substance: CANRENONE
  21. UMECLIDINIUM BROMIDE\VILANTEROL TRIFENATATE [Concomitant]
     Active Substance: UMECLIDINIUM BROMIDE\VILANTEROL TRIFENATATE
     Dosage: 1 DOSAGE FORM, QD, 55/22 MCG 1 INHALATION DAILY
  22. UMECLIDINIUM BROMIDE\VILANTEROL TRIFENATATE [Concomitant]
     Active Substance: UMECLIDINIUM BROMIDE\VILANTEROL TRIFENATATE
     Dosage: 1 DOSAGE FORM, QD, 55/22 MCG 1 INHALATION DAILY
     Route: 055
  23. UMECLIDINIUM BROMIDE\VILANTEROL TRIFENATATE [Concomitant]
     Active Substance: UMECLIDINIUM BROMIDE\VILANTEROL TRIFENATATE
     Dosage: 1 DOSAGE FORM, QD, 55/22 MCG 1 INHALATION DAILY
     Route: 055
  24. UMECLIDINIUM BROMIDE\VILANTEROL TRIFENATATE [Concomitant]
     Active Substance: UMECLIDINIUM BROMIDE\VILANTEROL TRIFENATATE
     Dosage: 1 DOSAGE FORM, QD, 55/22 MCG 1 INHALATION DAILY

REACTIONS (2)
  - Loss of consciousness [Recovering/Resolving]
  - Syncope [Recovering/Resolving]

NARRATIVE: CASE EVENT DATE: 20250223
